FAERS Safety Report 20382116 (Version 1)
Quarter: 2022Q1

REPORT INFORMATION
  Report Type: Spontaneous
  Country: FR (occurrence: FR)
  Receive Date: 20220127
  Receipt Date: 20220127
  Transmission Date: 20220423
  Serious: Yes (Congenital Anomaly, Other)
  Sender: FDA-Public Use
  Company Number: FR-ABBVIE-22K-056-4248960-00

PATIENT
  Sex: Male
  Weight: 2.96 kg

DRUGS (1)
  1. VALPROATE SODIUM [Suspect]
     Active Substance: VALPROATE SODIUM
     Indication: Maternal exposure timing unspecified
     Route: 064

REACTIONS (25)
  - Dysgraphia [Unknown]
  - Echolalia [Unknown]
  - Anxiety disorder [Unknown]
  - Umbilical hernia [Unknown]
  - Aphasia [Unknown]
  - Foot deformity [Unknown]
  - Sleep disorder [Unknown]
  - Haemangioma [Unknown]
  - Fatigue [Unknown]
  - Hypermetropia [Unknown]
  - Coordination abnormal [Unknown]
  - Psychomotor retardation [Unknown]
  - Refraction disorder [Unknown]
  - Congenital tongue anomaly [Unknown]
  - Learning disorder [Unknown]
  - Attention deficit hyperactivity disorder [Unknown]
  - Dysmorphism [Unknown]
  - Cognitive disorder [Unknown]
  - Neurodevelopmental disorder [Unknown]
  - Language disorder [Unknown]
  - Behaviour disorder [Unknown]
  - Memory impairment [Unknown]
  - Gait disturbance [Unknown]
  - Enuresis [Unknown]
  - Foetal exposure during pregnancy [Unknown]
